FAERS Safety Report 13585224 (Version 1)
Quarter: 2017Q2

REPORT INFORMATION
  Report Type: Report from Study
  Country: US (occurrence: US)
  Receive Date: 20170526
  Receipt Date: 20170526
  Transmission Date: 20170830
  Serious: Yes (Other)
  Sender: FDA-Public Use
  Company Number: US-CELGENEUS-USA-20170506755

PATIENT
  Age: 61 Year
  Sex: Male
  Weight: 85.53 kg

DRUGS (1)
  1. REVLIMID [Suspect]
     Active Substance: LENALIDOMIDE
     Indication: PLASMA CELL MYELOMA
     Dosage: 10 MILLIGRAM
     Route: 048
     Dates: start: 20150721

REACTIONS (2)
  - Squamous cell carcinoma of skin [Unknown]
  - Basosquamous carcinoma of skin [Unknown]

NARRATIVE: CASE EVENT DATE: 20170327
